FAERS Safety Report 6274748-0 (Version None)
Quarter: 2009Q3

REPORT INFORMATION
  Report Type: 
  Country: None (occurrence: None)
  Receive Date: 20090721
  Receipt Date: 20071004
  Transmission Date: 20100115
  Serious: Yes (Hospitalization, Other)
  Sender: FDA-Public Use
  Company Number: US-ASTRAZENECA-2006UW21202

PATIENT
  Age: 471 Month
  Sex: Male
  Weight: 112.5 kg

DRUGS (12)
  1. SEROQUEL [Suspect]
     Indication: DEPRESSION
     Dosage: 100MG-300MG
     Route: 048
     Dates: start: 20050701, end: 20051101
  2. SEROQUEL [Suspect]
     Indication: AGITATED DEPRESSION
     Dosage: 100MG-300MG
     Route: 048
     Dates: start: 20050701, end: 20051101
  3. ABILIFY [Concomitant]
     Dates: start: 20060701
  4. DEPAKOTE [Concomitant]
     Dosage: 500 MG - 1500MG
     Route: 048
     Dates: start: 20050718
  5. LEXAPRO [Concomitant]
     Dosage: 10MG - 20 MG
     Route: 048
     Dates: start: 20050718
  6. CLARITIN [Concomitant]
     Indication: RHINITIS SEASONAL
     Route: 048
     Dates: start: 20050718
  7. MS CONTIN [Concomitant]
     Dosage: 30MG - 60MG
     Route: 048
     Dates: start: 20050718
  8. NAPROSYN [Concomitant]
     Route: 048
     Dates: start: 19970401
  9. EFFEXOR [Concomitant]
     Dosage: 150MG - 220MG
     Route: 048
     Dates: start: 20050520
  10. ZYPREXA [Concomitant]
     Route: 048
     Dates: start: 20050520
  11. PHENERGAN [Concomitant]
     Dates: start: 20030227
  12. MECLIZINE [Concomitant]
     Indication: VERTIGO
     Dates: start: 20030227

REACTIONS (5)
  - DIABETES MELLITUS [None]
  - HYPOXIA [None]
  - LUNG DISORDER [None]
  - PNEUMONITIS [None]
  - PULMONARY EMBOLISM [None]
